FAERS Safety Report 5624842-X (Version None)
Quarter: 2008Q1

REPORT INFORMATION
  Report Type: 
  Country: None (occurrence: None)
  Receive Date: 20080208
  Receipt Date: 20080131
  Transmission Date: 20080703
  Serious: Yes (Hospitalization)
  Sender: FDA-Public Use
  Company Number: 023299

PATIENT
  Age: 78 Year
  Sex: Male

DRUGS (1)
  1. WARFARIN SODIUM(WARFARIN SODIUM) TABLET, 2 1/2MG [Suspect]
     Indication: CARDIAC OPERATION
     Dosage: 2.5 MG, QD, ORAL; 3 MG, QD, ORAL
     Route: 048

REACTIONS (2)
  - HAEMOPTYSIS [None]
  - HAEMORRHAGE [None]
